FAERS Safety Report 10201383 (Version 4)
Quarter: 2014Q3

REPORT INFORMATION
  Report Type: Spontaneous
  Country: US (occurrence: US)
  Receive Date: 20140528
  Receipt Date: 20140924
  Transmission Date: 20150326
  Serious: Yes (Hospitalization)
  Sender: FDA-Public Use
  Company Number: US-009507513-1405USA009671

PATIENT
  Age: 83 Year
  Sex: Female
  Weight: 63.49 kg

DRUGS (9)
  1. ZOCOR [Suspect]
     Active Substance: SIMVASTATIN
     Indication: PRODUCT USED FOR UNKNOWN INDICATION
     Dosage: 20 MG, UNK
     Route: 048
  2. TIKOSYN [Suspect]
     Active Substance: DOFETILIDE
     Dosage: 250 MICROGRAM, BID
     Route: 048
     Dates: start: 20140519, end: 20140527
  3. XARELTO [Concomitant]
     Active Substance: RIVAROXABAN
     Dosage: 20 MG, QD
     Dates: start: 2014
  4. SYNTHROID [Suspect]
     Active Substance: LEVOTHYROXINE SODIUM
     Indication: HYPOTHYROIDISM
     Dosage: 0.075 MG, UNK
  5. SYNTHROID [Suspect]
     Active Substance: LEVOTHYROXINE SODIUM
     Dosage: 0.05 MG, UNK
  6. TIKOSYN [Suspect]
     Active Substance: DOFETILIDE
     Indication: ATRIAL FIBRILLATION
     Dosage: 125 MICROGRAM, BID
     Route: 048
     Dates: start: 20140425, end: 20140518
  7. PRINIVIL [Suspect]
     Active Substance: LISINOPRIL
     Indication: HYPERTENSION
     Dosage: 10 MG, UNK
     Route: 048
  8. WARFARIN [Suspect]
     Active Substance: WARFARIN
     Dosage: UNK
     Dates: end: 2014
  9. METOPROLOL [Concomitant]
     Active Substance: METOPROLOL
     Dosage: 6.25 MG (QUARTER PART OF 25MG TABLET), BID

REACTIONS (14)
  - Atrial flutter [Unknown]
  - Cardiac ablation [Unknown]
  - Gait disturbance [Unknown]
  - Heart rate increased [Unknown]
  - Heart rate decreased [Unknown]
  - Blood pressure diastolic abnormal [Unknown]
  - Atrial fibrillation [Unknown]
  - Blood pressure systolic abnormal [Unknown]
  - Feeling hot [Unknown]
  - Atrial fibrillation [Unknown]
  - Arthralgia [Unknown]
  - Hyperthyroidism [Not Recovered/Not Resolved]
  - Hypothyroidism [Unknown]
  - Heart rate irregular [Unknown]

NARRATIVE: CASE EVENT DATE: 2014
